FAERS Safety Report 9980331 (Version 1)
Quarter: 2014Q1

REPORT INFORMATION
  Report Type: Spontaneous
  Country: US (occurrence: None)
  Receive Date: 20140305
  Receipt Date: 20140305
  Transmission Date: 20141002
  Serious: Yes (Hospitalization)
  Sender: FDA-Public Use
  Company Number: None

PATIENT
  Age: 51 Year
  Sex: Male
  Weight: 92 kg

DRUGS (3)
  1. TAXOL [Suspect]
     Dosage: 371 MG D1 OF 2 CYCLES INTRAVENOUS
     Route: 042
  2. CISPLATIN [Suspect]
     Dosage: 159 MG D1 OF 2 CYCLES INTRAVENOUS
     Route: 042
  3. CETUXIMAB [Concomitant]

REACTIONS (1)
  - Ulcer haemorrhage [None]
